FAERS Safety Report 7927842-X (Version None)
Quarter: 2011Q4

REPORT INFORMATION
  Report Type: 
  Country: None (occurrence: None)
  Receive Date: 20111118
  Receipt Date: 20111118
  Transmission Date: 20120403
  Serious: Yes (Life-Threatening)
  Sender: FDA-Public Use
  Company Number: None

PATIENT
  Age: 59 Year
  Sex: Male
  Weight: 88.904 kg

DRUGS (1)
  1. PROPRANOLOL [Suspect]
     Indication: TREMOR
     Dosage: L CAPSULE
     Route: 048
     Dates: start: 20111103, end: 20111108

REACTIONS (7)
  - HEART RATE INCREASED [None]
  - ANXIETY [None]
  - PRODUCT SUBSTITUTION ISSUE [None]
  - CHEST PAIN [None]
  - TREMOR [None]
  - IRRITABILITY [None]
  - DISTURBANCE IN ATTENTION [None]
